FAERS Safety Report 8796112 (Version 2)
Quarter: 2012Q4

REPORT INFORMATION
  Report Type: 
  Country: US (occurrence: US)
  Receive Date: 20120919
  Receipt Date: 20121212
  Transmission Date: 20130627
  Serious: Yes (Hospitalization, Other)
  Sender: FDA-Public Use
  Company Number: US-PFIZER INC-2012052354

PATIENT
  Age: 51 Year
  Sex: Female

DRUGS (4)
  1. CHANTIX [Suspect]
     Indication: SMOKING CESSATION THERAPY
     Dosage: starting pack, UNK
     Dates: start: 200812, end: 20090712
  2. VENLAFAXINE [Concomitant]
     Indication: DEPRESSION
     Dosage: UNK
     Dates: start: 2008, end: 2011
  3. KLONOPIN [Concomitant]
     Indication: ANXIETY
     Dosage: UNK
     Dates: start: 2004, end: 2011
  4. PROZAC [Concomitant]
     Indication: DEPRESSION
     Dosage: UNK
     Dates: start: 1979

REACTIONS (1)
  - Suicide attempt [Recovered/Resolved]
